FAERS Safety Report 9984603 (Version 2)
Quarter: 2014Q1

REPORT INFORMATION
  Report Type: Spontaneous
  Country: JP (occurrence: JP)
  Receive Date: 20140307
  Receipt Date: 20140307
  Transmission Date: 20141002
  Serious: Yes (Death, Hospitalization)
  Sender: FDA-Public Use
  Company Number: JP-BAYER-2014-011303

PATIENT
  Age: 74 Year
  Sex: Female
  Weight: 48 kg

DRUGS (5)
  1. STIVARGA [Suspect]
     Indication: RECTAL CANCER METASTATIC
     Dosage: 120 MG, QD
     Route: 048
     Dates: start: 20140106, end: 20140120
  2. AVASTIN [Suspect]
     Dosage: UNK
     Dates: end: 20131114
  3. LOXONIN [Concomitant]
     Dosage: DAILY DOSE 60 MG
     Route: 048
     Dates: start: 20131217, end: 20140120
  4. PLAVIX [Concomitant]
     Indication: CEREBRAL INFARCTION
     Dosage: DAILY DOSE 75 MG
     Route: 048
     Dates: start: 20101130, end: 20140120
  5. AMLODIPINE [Concomitant]
     Indication: CEREBROVASCULAR ACCIDENT PROPHYLAXIS
     Dosage: DAILY DOSE 5 MG
     Route: 048
     Dates: start: 20101130, end: 20140120

REACTIONS (3)
  - Gastrointestinal perforation [Fatal]
  - Peritonitis [Fatal]
  - Metastases to ovary [Fatal]
